FAERS Safety Report 15574790 (Version 1)
Quarter: 2018Q4

REPORT INFORMATION
  Report Type: Spontaneous
  Country: US (occurrence: US)
  Receive Date: 20181101
  Receipt Date: 20181101
  Transmission Date: 20190205
  Serious: No
  Sender: FDA-Public Use
  Company Number: US-GLAXOSMITHKLINE-US2018193049

PATIENT
  Age: 78 Year
  Sex: Female

DRUGS (2)
  1. ABREVA [Suspect]
     Active Substance: DOCOSANOL
     Indication: ORAL HERPES
     Dosage: UNK (2-3 TIMES A DAY)
     Dates: start: 20181001, end: 20181015
  2. ABREVA [Suspect]
     Active Substance: DOCOSANOL
     Dosage: UNK (2 -3 TIMES A DAY)
     Dates: start: 20181001, end: 20181015

REACTIONS (3)
  - Incorrect product administration duration [Unknown]
  - Wrong technique in product usage process [Unknown]
  - Inappropriate schedule of product administration [Unknown]
